FAERS Safety Report 22290479 (Version 2)
Quarter: 2023Q2

REPORT INFORMATION
  Report Type: Report from Study
  Country: IT (occurrence: IT)
  Receive Date: 20230505
  Receipt Date: 20230518
  Transmission Date: 20230721
  Serious: Yes (Hospitalization, Other)
  Sender: FDA-Public Use
  Company Number: IT-SA-SAC20230410001246

PATIENT
  Age: 52 Year
  Sex: Female

DRUGS (2)
  1. CEMIPLIMAB [Suspect]
     Active Substance: CEMIPLIMAB
     Indication: Cervix carcinoma recurrent
     Dosage: 350 MG, Q3W
     Route: 041
     Dates: start: 20230406, end: 20230427
  2. OMEPRAZOLE [Concomitant]
     Active Substance: OMEPRAZOLE
     Indication: Prophylaxis against gastrointestinal ulcer
     Dosage: 20 MG
     Route: 048
     Dates: start: 2020

REACTIONS (4)
  - Rectal haemorrhage [Recovered/Resolved]
  - Hepatic function abnormal [Recovered/Resolved]
  - Disease progression [Recovered/Resolved]
  - Jaundice [Unknown]

NARRATIVE: CASE EVENT DATE: 20230406
